FAERS Safety Report 20535227 (Version 1)
Quarter: 2022Q1

REPORT INFORMATION
  Report Type: Spontaneous
  Country: US (occurrence: None)
  Receive Date: 20220302
  Receipt Date: 20220302
  Transmission Date: 20220423
  Serious: Yes (Life-Threatening, Hospitalization, Other)
  Sender: FDA-Public Use
  Company Number: US-MLMSERVICE-20220216-3378609-1

PATIENT
  Age: 25 Year
  Sex: Male

DRUGS (1)
  1. PROPOFOL [Suspect]
     Active Substance: PROPOFOL
     Indication: Sedation
     Dosage: UNKNOWN
     Route: 065

REACTIONS (4)
  - Respiratory failure [Recovered/Resolved]
  - Hypertriglyceridaemia [Recovered/Resolved]
  - Complication associated with device [Recovered/Resolved]
  - Hypoxia [Recovered/Resolved]
